FAERS Safety Report 11043258 (Version 4)
Quarter: 2015Q2

REPORT INFORMATION
  Report Type: Report from Study
  Country: US (occurrence: US)
  Receive Date: 20150417
  Receipt Date: 20150511
  Transmission Date: 20150821
  Serious: Yes (Hospitalization, Other)
  Sender: FDA-Public Use
  Company Number: US-BAYER-2015-127876

PATIENT
  Age: 74 Year
  Sex: Male

DRUGS (2)
  1. STIVARGA [Suspect]
     Active Substance: REGORAFENIB
     Indication: COLON CANCER
     Dosage: 160MG, QD
     Route: 048
     Dates: start: 20150405
  2. STIVARGA [Suspect]
     Active Substance: REGORAFENIB
     Indication: COLON CANCER
     Dosage: 160 MG, QD
     Route: 048
     Dates: start: 20150328, end: 20150330

REACTIONS (6)
  - Weight fluctuation [Not Recovered/Not Resolved]
  - Oral pain [None]
  - Pneumonia [None]
  - Aphagia [None]
  - Asthenia [Not Recovered/Not Resolved]
  - Dyspnoea [None]

NARRATIVE: CASE EVENT DATE: 20150408
